FAERS Safety Report 14899356 (Version 1)
Quarter: 2018Q2

REPORT INFORMATION
  Report Type: Spontaneous
  Country: DE (occurrence: DE)
  Receive Date: 20180516
  Receipt Date: 20180516
  Transmission Date: 20180711
  Serious: Yes (Other)
  Sender: FDA-Public Use
  Company Number: DE-WEST-WARD PHARMACEUTICALS CORP.-DE-H14001-18-03932

PATIENT
  Age: 62 Year
  Sex: Female
  Weight: 89 kg

DRUGS (10)
  1. CALCIUM-D3 NYCOMED [Concomitant]
     Indication: PRODUCT USED FOR UNKNOWN INDICATION
     Dosage: ()
     Route: 048
  2. ZOMETA [Concomitant]
     Active Substance: ZOLEDRONIC ACID
     Indication: PRODUCT USED FOR UNKNOWN INDICATION
     Dosage: ()
  3. METOCLOPRAMID [Concomitant]
     Active Substance: METOCLOPRAMIDE
     Indication: NAUSEA
     Route: 048
     Dates: start: 20150216, end: 20161205
  4. CAPECITABINE. [Suspect]
     Active Substance: CAPECITABINE
     Indication: BREAST CANCER
     Route: 048
     Dates: start: 20150309, end: 20150309
  5. CAPECITABINE. [Suspect]
     Active Substance: CAPECITABINE
     Route: 048
     Dates: start: 20150216, end: 20151008
  6. CAPECITABINE. [Suspect]
     Active Substance: CAPECITABINE
     Route: 048
  7. BEVACIZUMAB. [Suspect]
     Active Substance: BEVACIZUMAB
     Indication: BREAST CANCER
     Route: 042
     Dates: start: 20150309, end: 20150309
  8. DEXAMETHASON [Concomitant]
     Active Substance: DEXAMETHASONE
     Indication: NAUSEA
     Dosage: PER CHEMOTHERAPY CYCLE
     Route: 042
  9. PANTOPRAZOL [Concomitant]
     Active Substance: PANTOPRAZOLE SODIUM
     Indication: PROPHYLAXIS
     Route: 048
  10. BEVACIZUMAB. [Suspect]
     Active Substance: BEVACIZUMAB
     Route: 042
     Dates: start: 20150216, end: 20151008

REACTIONS (8)
  - Epistaxis [Recovered/Resolved]
  - Pain in extremity [Recovered/Resolved]
  - Abdominal discomfort [Recovered/Resolved]
  - Borrelia infection [Not Recovered/Not Resolved]
  - Spinal pain [Recovered/Resolved]
  - Nasal mucosal disorder [Recovered/Resolved]
  - Constipation [Not Recovered/Not Resolved]
  - Musculoskeletal chest pain [Recovered/Resolved]

NARRATIVE: CASE EVENT DATE: 201503
